FAERS Safety Report 8282961-6 (Version None)
Quarter: 2012Q2

REPORT INFORMATION
  Report Type: 
  Country: None (occurrence: None)
  Receive Date: 20120413
  Receipt Date: 20110518
  Transmission Date: 20120825
  Serious: Yes (Death, Hospitalization, Other)
  Sender: FDA-Public Use
  Company Number: DE-CELGENEUS-062-50794-09020993

PATIENT
  Age: 70 Year
  Sex: Male

DRUGS (4)
  1. PLATELETS [Concomitant]
     Route: 065
     Dates: start: 20080901, end: 20081201
  2. ERYTHROCYTE CONCENTRATES [Concomitant]
     Route: 065
     Dates: start: 20080901, end: 20081201
  3. VIDAZA [Suspect]
     Dosage: 75 MILLIGRAM/SQ. METER
     Route: 058
     Dates: start: 20081124
  4. VIDAZA [Suspect]

REACTIONS (9)
  - EPILEPSY [None]
  - HERPES VIRUS INFECTION [None]
  - CHRONIC MYELOMONOCYTIC LEUKAEMIA [None]
  - CLOSTRIDIAL INFECTION [None]
  - TOXOPLASMOSIS [None]
  - PNEUMONIA FUNGAL [None]
  - ACUTE GRAFT VERSUS HOST DISEASE [None]
  - ILEUS PARALYTIC [None]
  - NERVOUS SYSTEM DISORDER [None]
